FAERS Safety Report 7456435-6 (Version None)
Quarter: 2011Q2

REPORT INFORMATION
  Report Type: 
  Country: None (occurrence: None)
  Receive Date: 20110426
  Receipt Date: 20110411
  Transmission Date: 20111010
  Serious: Yes (Hospitalization, Other)
  Sender: FDA-Public Use
  Company Number: 2011MA003687

PATIENT
  Age: 83 Year
  Sex: Female

DRUGS (1)
  1. EPIRUBICIN HYDROCHLORIDE INJECTION, 2MG/ML PACKAGED IN 10MG/5ML (ATLLC [Suspect]
     Indication: BREAST CANCER
     Dosage: INJ

REACTIONS (1)
  - EXTRAVASATION [None]
